FAERS Safety Report 8334306-0 (Version None)
Quarter: 2012Q2

REPORT INFORMATION
  Report Type: 
  Country: None (occurrence: None)
  Receive Date: 20120503
  Receipt Date: 20120427
  Transmission Date: 20120825
  Serious: Yes (Hospitalization)
  Sender: FDA-Public Use
  Company Number: DE-ABBOTT-12P-062-0930314-00

PATIENT
  Sex: Male
  Weight: 97 kg

DRUGS (6)
  1. METHOTREXATE SODIUM [Concomitant]
     Indication: ANKYLOSING SPONDYLITIS
     Dosage: 25 MG PER WEEK
     Dates: start: 20011201
  2. FOLCUR [Concomitant]
     Indication: ANKYLOSING SPONDYLITIS
     Dates: start: 20100928
  3. GLUCOCORTICOIDS [Concomitant]
     Indication: ANKYLOSING SPONDYLITIS
     Dosage: 5 MG DAILY
  4. CALCILAC [Concomitant]
     Indication: ANKYLOSING SPONDYLITIS
     Dates: start: 20110328
  5. ARCOXIA [Concomitant]
     Indication: ANKYLOSING SPONDYLITIS
     Dosage: 90 MG DAILY
     Dates: start: 20050501
  6. HUMIRA [Suspect]
     Indication: ANKYLOSING SPONDYLITIS
     Route: 058
     Dates: start: 20091230, end: 20120409

REACTIONS (1)
  - RENAL IMPAIRMENT [None]
